FAERS Safety Report 5091558-0 (Version None)
Quarter: 2006Q3

REPORT INFORMATION
  Report Type: 
  Country: None (occurrence: None)
  Receive Date: 20060829
  Receipt Date: 20060822
  Transmission Date: 20061208
  Serious: Yes (Hospitalization)
  Sender: FDA-Public Use
  Company Number: SE-ROCHE-460287

PATIENT
  Age: 16 Year
  Sex: Female

DRUGS (2)
  1. ROACCUTAN [Suspect]
     Indication: ACNE
     Route: 048
     Dates: start: 20060415, end: 20060815
  2. ROACCUTAN [Suspect]
     Dosage: RESTARTED AFTER TWO WEEK BREAK.
     Route: 048
     Dates: start: 20060815, end: 20060815

REACTIONS (3)
  - HEADACHE [None]
  - MUSCLE SPASMS [None]
  - NAUSEA [None]
